FAERS Safety Report 6689078-2 (Version None)
Quarter: 2010Q2

REPORT INFORMATION
  Report Type: 
  Country: None (occurrence: None)
  Receive Date: 20100420
  Receipt Date: 20100413
  Transmission Date: 20101027
  Serious: Yes (Hospitalization)
  Sender: FDA-Public Use
  Company Number: US-GILEAD-2010-0028482

PATIENT
  Sex: Female
  Weight: 80.9 kg

DRUGS (9)
  1. LETAIRIS [Suspect]
     Indication: PULMONARY ARTERIAL HYPERTENSION
     Route: 048
     Dates: start: 20090529
  2. ADCIRCA [Concomitant]
  3. HYDROCHLOROTHIAZIDE [Concomitant]
  4. LISINOPRIL [Concomitant]
  5. METOPROLOL TARTRATE [Concomitant]
  6. TERBINAFINE HCL [Concomitant]
  7. METFORMIN HCL [Concomitant]
  8. LESCOL [Concomitant]
  9. JANUVIA [Concomitant]

REACTIONS (1)
  - LOCALISED INFECTION [None]
